FAERS Safety Report 8494511-X (Version None)
Quarter: 2012Q3

REPORT INFORMATION
  Report Type: 
  Country: None (occurrence: None)
  Receive Date: 20120709
  Receipt Date: 20111010
  Transmission Date: 20120928
  Serious: No
  Sender: FDA-Public Use
  Company Number: US-COVIDIEN/TYCO HEALTHCARE/MALLINCKRODT-T201101949

PATIENT
  Sex: Male

DRUGS (4)
  1. TERAZOSIN HCL [Concomitant]
     Dosage: 10 MG, QD
  2. OXYCODONE/ACETAMINOPHEN [Suspect]
     Indication: PROCEDURAL PAIN
     Dosage: 1 TABLET, Q 4HRS PRN FOR PAIN
     Route: 048
     Dates: start: 20110926, end: 20110926
  3. LOVASTATIN [Concomitant]
     Dosage: 20 MG, QD
  4. VASOTEC [Concomitant]
     Dosage: 10 MG, QD

REACTIONS (3)
  - DISORIENTATION [None]
  - DIZZINESS [None]
  - GAIT DISTURBANCE [None]
